FAERS Safety Report 10309840 (Version 3)
Quarter: 2014Q4

REPORT INFORMATION
  Report Type: Spontaneous
  Country: US (occurrence: US)
  Receive Date: 20140717
  Receipt Date: 20141229
  Transmission Date: 20150528
  Serious: Yes (Death, Hospitalization, Other)
  Sender: FDA-Public Use
  Company Number: US-PFIZER INC-2014196631

PATIENT
  Age: 82 Year
  Sex: Female
  Weight: 45 kg

DRUGS (9)
  1. COENZYME Q10 [Concomitant]
     Active Substance: UBIDECARENONE
     Indication: CARDIAC DISORDER
  2. ASPIRIN. [Concomitant]
     Active Substance: ASPIRIN
     Dosage: 81 MG, TWO EVERY EVENING
  3. SODIUM CHLORIDE. [Concomitant]
     Active Substance: SODIUM CHLORIDE
     Dosage: 9000 MG, DAILY
     Dates: start: 2014
  4. LEVOTHYROXINE [Concomitant]
     Active Substance: LEVOTHYROXINE
     Indication: THYROID DISORDER
     Dosage: 200 ?G, 1X/DAY
     Dates: start: 1970
  5. COENZYME Q10 [Concomitant]
     Active Substance: UBIDECARENONE
     Indication: DYSPNOEA
     Dosage: 100 MG, UNK
  6. OMEPRAZOLE. [Concomitant]
     Active Substance: OMEPRAZOLE
     Indication: GASTROINTESTINAL DISORDER
     Dosage: 20 MG, UNK
     Dates: start: 20141001
  7. ZOCOR [Concomitant]
     Active Substance: SIMVASTATIN
     Indication: BLOOD CHOLESTEROL ABNORMAL
     Dosage: 20 MG, 1X/DAY
  8. REVATIO [Suspect]
     Active Substance: SILDENAFIL CITRATE
     Dosage: 40 MG, 3X/DAY
  9. REVATIO [Suspect]
     Active Substance: SILDENAFIL CITRATE
     Indication: PULMONARY HYPERTENSION
     Dosage: UNK

REACTIONS (7)
  - Cardiac failure [Fatal]
  - Hepatic cirrhosis [Unknown]
  - Hepatic failure [Unknown]
  - Incorrect dose administered [Unknown]
  - Hypertension [Unknown]
  - Respiratory failure [Unknown]
  - Renal failure [Unknown]

NARRATIVE: CASE EVENT DATE: 201401
